FAERS Safety Report 6793760-6 (Version None)
Quarter: 2010Q2

REPORT INFORMATION
  Report Type: 
  Country: None (occurrence: None)
  Receive Date: 20100624
  Receipt Date: 20090220
  Transmission Date: 20101027
  Serious: No
  Sender: FDA-Public Use
  Company Number: US-PFIZER INC-2009160996

PATIENT
  Age: 31 Year
  Sex: Female
  Weight: 49.9 kg

DRUGS (2)
  1. DEPO-SUBQ PROVERA 104 [Suspect]
     Indication: ENDOMETRIOSIS
     Dosage: UNK
     Route: 058
  2. CALCIUM CARBONATE [Concomitant]
     Dosage: UNK

REACTIONS (1)
  - INJECTION SITE REACTION [None]
